FAERS Safety Report 17297334 (Version 1)
Quarter: 2020Q1

REPORT INFORMATION
  Report Type: Report from Study
  Country: FR (occurrence: FR)
  Receive Date: 20200121
  Receipt Date: 20200121
  Transmission Date: 20200409
  Serious: Yes (Other)
  Sender: FDA-Public Use
  Company Number: FR-CELGENEUS-FRA-20200105028

PATIENT
  Age: 73 Year
  Sex: Female

DRUGS (7)
  1. ZOPHREN [Concomitant]
     Active Substance: ONDANSETRON
     Indication: PROPHYLAXIS OF NAUSEA AND VOMITING
     Dosage: 1 PER INJECTION
     Route: 065
     Dates: start: 20191227, end: 20191231
  2. ISTODAX [Suspect]
     Active Substance: ROMIDEPSIN
     Indication: CUTANEOUS T-CELL LYMPHOMA REFRACTORY
     Route: 041
     Dates: start: 20191115, end: 20191227
  3. BACTRIM [Concomitant]
     Active Substance: SULFAMETHOXAZOLE\TRIMETHOPRIM
     Indication: PROPHYLAXIS
     Dosage: 1 PER INJECTION
     Route: 065
     Dates: start: 201911
  4. CETIRIZINE [Concomitant]
     Active Substance: CETIRIZINE HYDROCHLORIDE
     Indication: PRURITUS
     Dosage: 1 PER INJECTION
     Route: 065
     Dates: start: 201911
  5. ATARAX [Concomitant]
     Active Substance: HYDROXYZINE HYDROCHLORIDE
     Indication: PRURITUS
     Dosage: 1 PER INJECTION
     Route: 065
     Dates: start: 201911
  6. CORTANCYL [Concomitant]
     Active Substance: PREDNISONE
     Indication: LYMPHOMA
     Dosage: 20 MILLIGRAM
     Route: 065
     Dates: start: 20191115
  7. ZELITREX [Concomitant]
     Active Substance: VALACYCLOVIR HYDROCHLORIDE
     Indication: PROPHYLAXIS
     Dosage: 1 PER INJECTION
     Route: 065
     Dates: start: 201911

REACTIONS (1)
  - Deafness [Not Recovered/Not Resolved]

NARRATIVE: CASE EVENT DATE: 20200110
